FAERS Safety Report 5932661-X (Version None)
Quarter: 2008Q4

REPORT INFORMATION
  Report Type: 
  Country: None (occurrence: None)
  Receive Date: 20081028
  Receipt Date: 20081022
  Transmission Date: 20090506
  Serious: Yes (Other)
  Sender: FDA-Public Use
  Company Number: US-ASTRAZENECA-2008UW23569

PATIENT
  Age: 76 Year
  Sex: Female
  Weight: 57.6 kg

DRUGS (9)
  1. NEXIUM [Suspect]
     Indication: GASTROOESOPHAGEAL REFLUX DISEASE
     Route: 048
  2. NEXIUM [Suspect]
     Indication: HIATUS HERNIA
     Route: 048
  3. PRILOSEC [Suspect]
     Route: 048
  4. RECLAST [Concomitant]
  5. TUMS [Concomitant]
     Dosage: SIX PER DAY
  6. HYDROCHLOROTHIAZIDE [Concomitant]
     Dosage: 25 MG
  7. METOPROLOL TARTRATE [Concomitant]
     Dosage: 50 MG 1/2 TABLET
     Route: 048
  8. VITAMIN D [Concomitant]
  9. ASPIRIN [Concomitant]
     Dosage: 325 1/2 TABLET

REACTIONS (3)
  - ANKLE FRACTURE [None]
  - OSTEOPOROSIS [None]
  - SPINAL FRACTURE [None]
